FAERS Safety Report 19771304 (Version 4)
Quarter: 2021Q4

REPORT INFORMATION
  Report Type: Spontaneous
  Country: US (occurrence: US)
  Receive Date: 20210831
  Receipt Date: 20211129
  Transmission Date: 20220303
  Serious: Yes (Other)
  Sender: FDA-Public Use
  Company Number: US-JNJFOC-20210854998

PATIENT
  Age: 53 Year
  Sex: Female

DRUGS (20)
  1. ELMIRON [Suspect]
     Active Substance: PENTOSAN POLYSULFATE SODIUM
     Indication: Cystitis interstitial
     Dosage: 2 - 100MG CAPSULES 2X DAILY (4 TOTAL A DAY)
     Route: 048
     Dates: start: 201405
  2. ELMIRON [Suspect]
     Active Substance: PENTOSAN POLYSULFATE SODIUM
     Route: 048
     Dates: end: 202005
  3. TOPIRAMATE [Concomitant]
     Active Substance: TOPIRAMATE
     Dates: start: 2013
  4. SOLIFENACIN [Concomitant]
     Active Substance: SOLIFENACIN
     Indication: Bladder disorder
     Dates: start: 2021
  5. ONDANSETRON [Concomitant]
     Active Substance: ONDANSETRON
     Indication: Nausea
     Dates: start: 2020
  6. HYOSCYAMINE [Concomitant]
     Active Substance: HYOSCYAMINE
     Indication: Bladder disorder
     Dates: start: 2016
  7. PREGABALIN [Concomitant]
     Active Substance: PREGABALIN
     Indication: Fibromyalgia
     Dates: start: 2019
  8. AMITRIPTYLINE [Concomitant]
     Active Substance: AMITRIPTYLINE
     Indication: Depression
     Dates: start: 2015
  9. NITROFURANTOIN [Concomitant]
     Active Substance: NITROFURANTOIN
     Dates: start: 201303, end: 202101
  10. LISINOPRIL [Concomitant]
     Active Substance: LISINOPRIL
     Dates: start: 201501, end: 201906
  11. DULOXETINE [Concomitant]
     Active Substance: DULOXETINE
     Dates: start: 201504, end: 202101
  12. KETOCONAZOLE [Concomitant]
     Active Substance: KETOCONAZOLE
     Dates: start: 201405
  13. CLOBETASOL [Concomitant]
     Active Substance: CLOBETASOL
     Dates: start: 201508, end: 201711
  14. HYDROXYZINE [Concomitant]
     Active Substance: HYDROXYZINE HYDROCHLORIDE
     Dates: start: 201601, end: 201911
  15. LYRICA [Concomitant]
     Active Substance: PREGABALIN
     Dates: start: 201602, end: 201904
  16. MUPIROCIN [Concomitant]
     Active Substance: MUPIROCIN
     Dates: start: 201312, end: 201912
  17. IMIPRAMINE [Concomitant]
     Active Substance: IMIPRAMINE
     Dates: start: 201607, end: 201903
  18. ALMOTRIPTAN MALATE [Concomitant]
     Active Substance: ALMOTRIPTAN MALATE
     Dates: start: 201511, end: 202101
  19. DESONIDE [Concomitant]
     Active Substance: DESONIDE
     Dates: start: 201405, end: 202012
  20. TRIAMCINOLONE [Concomitant]
     Active Substance: TRIAMCINOLONE
     Dates: start: 201512, end: 201907

REACTIONS (3)
  - Retinal pigmentation [Unknown]
  - Off label use [Unknown]
  - Product use issue [Unknown]

NARRATIVE: CASE EVENT DATE: 20140501
